FAERS Safety Report 8218086-5 (Version None)
Quarter: 2012Q1

REPORT INFORMATION
  Report Type: 
  Country: None (occurrence: None)
  Receive Date: 20120316
  Receipt Date: 20120316
  Transmission Date: 20120608
  Serious: Yes (Hospitalization)
  Sender: FDA-Public Use
  Company Number: None

PATIENT
  Age: 70 Year
  Sex: Female
  Weight: 73.9363 kg

DRUGS (3)
  1. METOPROLOL TARTRATE [Suspect]
     Dosage: 1/2 TAB EVERY OTHER DAY
  2. AMIODARONE HYDROCHLORIDE [Suspect]
     Indication: ATRIAL TACHYCARDIA
     Dosage: 200 MG (1) DAILY
     Dates: start: 20091118
  3. AMIODARONE HYDROCHLORIDE [Suspect]
     Indication: VENTRICULAR TACHYCARDIA
     Dosage: 200 MG (1) DAILY
     Dates: start: 20091118

REACTIONS (4)
  - VOMITING [None]
  - DIZZINESS [None]
  - NAUSEA [None]
  - DIARRHOEA [None]
